FAERS Safety Report 8814529 (Version 1)
Quarter: 2012Q4

REPORT INFORMATION
  Report Type: 
  Country: AU (occurrence: AU)
  Receive Date: 20120928
  Receipt Date: 20120928
  Transmission Date: 20130627
  Serious: Yes (Other)
  Sender: FDA-Public Use
  Company Number: PHHY2012AU084530

PATIENT
  Age: 81 Year
  Sex: Female

DRUGS (4)
  1. ACLASTA [Suspect]
     Dosage: 5 mg,
     Route: 042
     Dates: start: 20090824
  2. ACLASTA [Suspect]
     Dosage: 5 mg,
     Route: 042
     Dates: start: 20100907
  3. ACLASTA [Suspect]
     Dosage: 5 mg,
     Route: 042
     Dates: start: 20110927
  4. ACLASTA [Suspect]
     Dosage: 5 mg,
     Route: 042
     Dates: start: 20120925

REACTIONS (2)
  - Fall [Unknown]
  - Wrist fracture [Unknown]
